FAERS Safety Report 13378316 (Version 1)
Quarter: 2017Q1

REPORT INFORMATION
  Report Type: Report from Study
  Country: TN (occurrence: TN)
  Receive Date: 20170328
  Receipt Date: 20170328
  Transmission Date: 20170429
  Serious: Yes (Hospitalization)
  Sender: FDA-Public Use
  Company Number: TN-IPCA LABORATORIES LIMITED-IPC201703-000339

PATIENT

DRUGS (1)
  1. PROPRANOLOL HYDROCHLORIDE. [Suspect]
     Active Substance: PROPRANOLOL HYDROCHLORIDE

REACTIONS (3)
  - Cardiogenic shock [Unknown]
  - Toxicity to various agents [Unknown]
  - Bradycardia [Unknown]
